FAERS Safety Report 22307490 (Version 2)
Quarter: 2024Q3

REPORT INFORMATION
  Report Type: Spontaneous
  Country: JP (occurrence: JP)
  Receive Date: 20230511
  Receipt Date: 20240812
  Transmission Date: 20241017
  Serious: Yes (Other)
  Sender: RANBAXY
  Company Number: JP-SUN PHARMACEUTICAL INDUSTRIES LTD-2023R1-387799

PATIENT
  Age: 10 Year
  Sex: Male

DRUGS (2)
  1. CLINDAMYCIN [Suspect]
     Active Substance: CLINDAMYCIN
     Indication: Streptococcal infection
     Dosage: 40 MILLIGRAM/KILOGRAM IN 4 DIVIDED DOSES
     Route: 042
  2. AMOXICILLIN\SULBACTAM [Suspect]
     Active Substance: AMOXICILLIN\SULBACTAM
     Indication: Streptococcal infection
     Dosage: 180 MILLIGRAM/KILOGRAM, DAILY, IN 4 DIVIDED DOSES
     Route: 042

REACTIONS (1)
  - Therapeutic response decreased [Unknown]
